FAERS Safety Report 11841600 (Version 1)
Quarter: 2015Q4

REPORT INFORMATION
  Report Type: Other
  Country: IT (occurrence: IT)
  Receive Date: 20151216
  Receipt Date: 20151216
  Transmission Date: 20160305
  Serious: Yes (Other)
  Sender: FDA-Public Use
  Company Number: IT-MYLANLABS-2015M1043442

PATIENT

DRUGS (2)
  1. ENALAPRIL [Suspect]
     Active Substance: ENALAPRIL
     Indication: ESSENTIAL HYPERTENSION
     Dosage: 20 MG, QD
     Route: 048
     Dates: start: 20150101
  2. EUTIROX [Concomitant]
     Active Substance: LEVOTHYROXINE SODIUM
     Indication: HYPOTHYROIDISM

REACTIONS (2)
  - Epistaxis [Recovering/Resolving]
  - Hypertensive crisis [Recovering/Resolving]

NARRATIVE: CASE EVENT DATE: 20151027
